FAERS Safety Report 12968333 (Version 1)
Quarter: 2016Q4

REPORT INFORMATION
  Report Type: Spontaneous
  Country: US (occurrence: US)
  Receive Date: 20161121
  Receipt Date: 20161121
  Transmission Date: 20170207
  Serious: No
  Sender: FDA-Public Use
  Company Number: None

PATIENT
  Sex: Female

DRUGS (1)
  1. HUMIRA [Suspect]
     Active Substance: ADALIMUMAB
     Indication: PSORIASIS
     Dosage: 400MG EVERY OTHER WEEK?TO PRESENT ON HOLD
     Route: 058
     Dates: start: 20160913

REACTIONS (3)
  - Pruritus [None]
  - Erythema [None]
  - Swelling [None]
